FAERS Safety Report 23795192 (Version 1)
Quarter: 2024Q2

REPORT INFORMATION
  Report Type: Spontaneous
  Country: US (occurrence: None)
  Receive Date: 20240426
  Receipt Date: 20240426
  Transmission Date: 20240716
  Serious: Yes (Life-Threatening, Hospitalization, Disabling)
  Sender: FDA-Public Use
  Company Number: None

PATIENT
  Age: 34 Year
  Sex: Female
  Weight: 55.8 kg

DRUGS (3)
  1. DEPAKOTE [Suspect]
     Active Substance: DIVALPROEX SODIUM
     Indication: Bipolar disorder
     Dosage: FREQUENCY : EVERY 12 HOURS;?
     Route: 048
     Dates: start: 20240311, end: 20240327
  2. OLANZAPINE [Suspect]
     Active Substance: OLANZAPINE
  3. ZYPREXA [Suspect]
     Active Substance: OLANZAPINE

REACTIONS (4)
  - Drug-induced liver injury [None]
  - Scar [None]
  - Hepatic steatosis [None]
  - Hepatic fibrosis [None]

NARRATIVE: CASE EVENT DATE: 20240327
